FAERS Safety Report 6400888-9 (Version None)
Quarter: 2009Q4

REPORT INFORMATION
  Report Type: 
  Country: None (occurrence: None)
  Receive Date: 20091009
  Receipt Date: 20091002
  Transmission Date: 20100525
  Serious: Yes (Other)
  Sender: FDA-Public Use
  Company Number: 231192K09USA

PATIENT
  Age: 43 Year
  Sex: Female

DRUGS (1)
  1. REBIF [Suspect]
     Indication: MULTIPLE SCLEROSIS
     Dosage: 44 MCG, 3 IN 1 WEEKS; SUBCUTANEOUS
     Route: 058
     Dates: start: 20080901, end: 20090127

REACTIONS (5)
  - BREAST CANCER FEMALE [None]
  - DRUG HYPERSENSITIVITY [None]
  - METASTASES TO LYMPH NODES [None]
  - NEUTROPENIA [None]
  - RENAL FAILURE [None]
